FAERS Safety Report 6477724-8 (Version None)
Quarter: 2009Q4

REPORT INFORMATION
  Report Type: 
  Country: None (occurrence: None)
  Receive Date: 20091203
  Receipt Date: 20091203
  Transmission Date: 20100525
  Serious: Yes (Life-Threatening, Disabling, Other)
  Sender: FDA-Public Use
  Company Number: None

PATIENT
  Age: 34 Year
  Sex: Male
  Weight: 95.2554 kg

DRUGS (1)
  1. STRATTERA [Suspect]
     Indication: ATTENTION DEFICIT/HYPERACTIVITY DISORDER
     Dosage: 60MG 1/DY PO
     Route: 048
     Dates: start: 20020601, end: 20091202

REACTIONS (8)
  - AGGRESSION [None]
  - AGITATION [None]
  - ALCOHOL USE [None]
  - LOSS OF CONSCIOUSNESS [None]
  - MOOD SWINGS [None]
  - PALPITATIONS [None]
  - PHYSICAL ABUSE [None]
  - THREAT OF REDUNDANCY [None]
